FAERS Safety Report 7954877-3 (Version None)
Quarter: 2011Q4

REPORT INFORMATION
  Report Type: 
  Country: None (occurrence: None)
  Receive Date: 20111202
  Receipt Date: 20111124
  Transmission Date: 20120403
  Serious: Yes (Other)
  Sender: FDA-Public Use
  Company Number: FR-MERCK-1104FRA00132

PATIENT
  Age: 74 Year
  Sex: Female

DRUGS (12)
  1. SIMVASTATIN [Suspect]
     Route: 048
     Dates: start: 19990101
  2. ALLOPURINOL [Concomitant]
     Route: 065
  3. ROSUVASTATIN CALCIUM [Suspect]
     Route: 065
     Dates: end: 20100101
  4. CANDESARTAN CILEXETIL AND HYDROCHLOROTHIAZIDE [Concomitant]
     Route: 065
  5. LERCANIDIPINE HYDROCHLORIDE [Concomitant]
     Route: 065
  6. BETAXOLOL HYDROCHLORIDE [Concomitant]
     Route: 065
  7. RILMENIDINE [Concomitant]
     Route: 065
  8. EZETIMIBE [Concomitant]
     Route: 065
  9. NOROXIN [Suspect]
     Indication: CYSTITIS
     Route: 048
     Dates: start: 20100701, end: 20100701
  10. ACARBOSE [Concomitant]
     Route: 065
  11. INSULIN LISPRO [Concomitant]
     Route: 065
  12. CLOPIDOGREL BISULFATE [Concomitant]
     Route: 065

REACTIONS (3)
  - DRUG INTERACTION [None]
  - MYOPATHY [None]
  - RHABDOMYOLYSIS [None]
